FAERS Safety Report 8517008-7 (Version None)
Quarter: 2012Q3

REPORT INFORMATION
  Report Type: 
  Country: None (occurrence: None)
  Receive Date: 20120718
  Receipt Date: 20120712
  Transmission Date: 20120928
  Serious: Yes (Hospitalization)
  Sender: FDA-Public Use
  Company Number: ZA-NOVOPROD-343559

PATIENT
  Age: 32 Year
  Sex: Female
  Weight: 78 kg

DRUGS (4)
  1. PROTAPHANE FLEXPEN [Suspect]
     Indication: GESTATIONAL DIABETES
     Dosage: 24 U, QD
     Route: 058
     Dates: start: 20111204
  2. PROTAPHANE FLEXPEN [Suspect]
     Dosage: 40 U, QD
     Route: 058
  3. NOVORAPID FLEXPEN [Suspect]
     Indication: GESTATIONAL DIABETES
     Dosage: 36 U, QD
     Route: 058
     Dates: start: 20111204
  4. NOVORAPID FLEXPEN [Suspect]
     Dosage: 38 U, QD
     Route: 058

REACTIONS (3)
  - MATERNAL EXPOSURE DURING PREGNANCY [None]
  - PLACENTAL DISORDER [None]
  - BLOOD GLUCOSE INCREASED [None]
